FAERS Safety Report 24543512 (Version 1)
Quarter: 2024Q4

REPORT INFORMATION
  Report Type: Spontaneous
  Country: US (occurrence: US)
  Receive Date: 20241024
  Receipt Date: 20241024
  Transmission Date: 20250115
  Serious: Yes (Other)
  Sender: SERVIER
  Company Number: US-SERVIER-S24013344

PATIENT

DRUGS (6)
  1. ASPARLAS [Suspect]
     Active Substance: CALASPARGASE PEGOL-MKNL
     Indication: T-cell lymphoma
     Dosage: 3600 IU, ONE DOSE
     Route: 042
     Dates: start: 20240826, end: 20240826
  2. ASPARLAS [Suspect]
     Active Substance: CALASPARGASE PEGOL-MKNL
     Dosage: 3525 IU, ONE DOSE
     Route: 042
     Dates: start: 20241014, end: 20241014
  3. VINCRISTINE [Concomitant]
     Active Substance: VINCRISTINE
     Indication: T-cell lymphoma
     Dosage: UNK
     Route: 042
  4. KYTRIL [Concomitant]
     Active Substance: GRANISETRON HYDROCHLORIDE
     Indication: Premedication
     Dosage: UNK
     Route: 065
     Dates: start: 20241014, end: 20241014
  5. BENADRYL [Concomitant]
     Active Substance: DIPHENHYDRAMINE HYDROCHLORIDE
     Indication: Premedication
     Dosage: UNK
     Route: 065
     Dates: start: 20241014, end: 20241014
  6. PEPCID [Concomitant]
     Active Substance: FAMOTIDINE
     Indication: Premedication
     Dosage: UNK
     Route: 065
     Dates: start: 20241014, end: 20241014

REACTIONS (1)
  - Anaphylactic reaction [Recovered/Resolved]

NARRATIVE: CASE EVENT DATE: 20241014
